FAERS Safety Report 22593788 (Version 1)
Quarter: 2023Q2

REPORT INFORMATION
  Report Type: Spontaneous
  Country: US (occurrence: US)
  Receive Date: 20230613
  Receipt Date: 20230613
  Transmission Date: 20230722
  Serious: Yes (Other)
  Sender: FDA-Public Use
  Company Number: US-BAYER-2023A078256

PATIENT
  Age: 32 Year
  Sex: Female

DRUGS (3)
  1. ASPIRIN [Suspect]
     Active Substance: ASPIRIN
     Dosage: 81 MG
  2. CLOPIDOGREL [Concomitant]
     Active Substance: CLOPIDOGREL BISULFATE
     Dosage: 150 MG
  3. BETAMETHASONE [Concomitant]
     Active Substance: BETAMETHASONE

REACTIONS (5)
  - Pre-eclampsia [None]
  - Hypertension [None]
  - Maternal exposure during pregnancy [None]
  - Contraindicated product administered [None]
  - Premature delivery [None]
